FAERS Safety Report 17272766 (Version 1)
Quarter: 2020Q1

REPORT INFORMATION
  Report Type: Spontaneous
  Country: US (occurrence: US)
  Receive Date: 20191224
  Receipt Date: 20191224
  Transmission Date: 20200409
  Serious: No
  Sender: FDA-Public Use
  Company Number: None

PATIENT
  Age: 67 Year
  Sex: Male

DRUGS (1)
  1. ISENTRESS [Suspect]
     Active Substance: RALTEGRAVIR POTASSIUM
     Indication: HIV INFECTION
     Dosage: ?          OTHER DOSE:NOT AVAILABLE;?
     Route: 048
     Dates: start: 201801

REACTIONS (1)
  - Product use issue [None]

NARRATIVE: CASE EVENT DATE: 20191224
